FAERS Safety Report 19371185 (Version 1)
Quarter: 2021Q2

REPORT INFORMATION
  Report Type: Spontaneous
  Country: US (occurrence: US)
  Receive Date: 20210604
  Receipt Date: 20210604
  Transmission Date: 20210717
  Serious: No
  Sender: FDA-Public Use
  Company Number: US-ASPEN-GLO2021US003531

PATIENT

DRUGS (1)
  1. BENZTROPINE MESYLATE. [Suspect]
     Active Substance: BENZTROPINE MESYLATE
     Indication: TREMOR
     Dosage: 1 MG 2?3 MONTHS
     Route: 065
     Dates: end: 20210430

REACTIONS (3)
  - Weight increased [Unknown]
  - Increased appetite [Recovered/Resolved]
  - Off label use [Unknown]
